FAERS Safety Report 4341542-7 (Version None)
Quarter: 2004Q2

REPORT INFORMATION
  Report Type: 
  Country: None (occurrence: None)
  Receive Date: 20040419
  Receipt Date: 20040419
  Transmission Date: 20050107
  Serious: Yes (Life-Threatening, Hospitalization)
  Sender: FDA-Public Use
  Company Number: None

PATIENT
  Age: 77 Year
  Sex: Male
  Weight: 57.3 kg

DRUGS (14)
  1. INDOMETHACIN [Suspect]
     Indication: ARTHRITIS
     Dosage: 25MG TID ORAL
     Route: 048
     Dates: start: 20040329, end: 20040406
  2. SIMVASTATIN [Concomitant]
  3. ALBUTEROL [Concomitant]
  4. NITROGLYCERIN [Concomitant]
  5. DOCUSATE NA [Concomitant]
  6. FUROSEMIDE [Concomitant]
  7. LISINOPRIL [Concomitant]
  8. OMEPRAZOLE [Concomitant]
  9. POTASSIUM CHLORIDE [Concomitant]
  10. LANOXIN [Concomitant]
  11. AMIODARONE HCL (GENEVA) [Concomitant]
  12. ALLOPURINOL [Concomitant]
  13. IPRATROPIUM BROMIDE [Concomitant]
  14. GOSERELIN ACETATE [Concomitant]

REACTIONS (3)
  - AZOTAEMIA [None]
  - GASTROINTESTINAL HAEMORRHAGE [None]
  - RESPIRATORY FAILURE [None]
